FAERS Safety Report 9002420 (Version 3)
Quarter: 2013Q4

REPORT INFORMATION
  Report Type: Spontaneous
  Country: US (occurrence: US)
  Receive Date: 20130107
  Receipt Date: 20131206
  Transmission Date: 20140711
  Serious: Yes (Hospitalization, Disabling, Other)
  Sender: FDA-Public Use
  Company Number: US-009507513-1301USA000741

PATIENT
  Sex: Female

DRUGS (5)
  1. FOSAMAX [Suspect]
     Indication: OSTEOPOROSIS
     Dosage: 10 MG, UNK
     Route: 048
  2. FOSAMAX [Suspect]
     Dosage: 70 MG, QW
     Route: 048
     Dates: end: 200801
  3. FOSAMAX PLUS D [Suspect]
     Indication: OSTEOPOROSIS
     Dosage: 70 MG, UNK
     Route: 048
     Dates: start: 200801, end: 200907
  4. ALENDRONATE SODIUM [Suspect]
     Indication: OSTEOPOROSIS
     Dosage: 70 MG, UNK
     Dates: start: 20090813, end: 201304
  5. ALLEGRA [Concomitant]
     Indication: HYPERSENSITIVITY
     Dosage: UNK
     Dates: start: 200203

REACTIONS (28)
  - Femur fracture [Not Recovered/Not Resolved]
  - Osteoporosis [Not Recovered/Not Resolved]
  - Stress fracture [Not Recovered/Not Resolved]
  - Femur fracture [Not Recovered/Not Resolved]
  - Low turnover osteopathy [Not Recovered/Not Resolved]
  - Femur fracture [Recovering/Resolving]
  - Intramedullary rod insertion [Unknown]
  - Intramedullary rod insertion [Unknown]
  - Spinal rod insertion [Unknown]
  - Femoral neck fracture [Unknown]
  - Post procedural infection [Unknown]
  - Hypertension [Unknown]
  - Asthma [Unknown]
  - Infection [Unknown]
  - Foot fracture [Unknown]
  - Infection [Unknown]
  - Infection [Unknown]
  - Cough [Unknown]
  - Arthritis [Unknown]
  - Thrombosis [Unknown]
  - Cataract operation [Unknown]
  - Plantar fasciitis [Unknown]
  - Scoliosis [Unknown]
  - Haemorrhoids [Unknown]
  - Infection [Unknown]
  - Pain [Unknown]
  - Adverse event [Unknown]
  - Gastrooesophageal reflux disease [Unknown]
